FAERS Safety Report 9185230 (Version 1)
Quarter: 2012Q4

REPORT INFORMATION
  Report Type: Report from Study
  Country: JP (occurrence: JP)
  Receive Date: 20121031
  Receipt Date: 20121031
  Transmission Date: 20130627
  Serious: Yes (Other)
  Sender: FDA-Public Use
  Company Number: JP-009507513-2012SP027003

PATIENT
  Age: 74 Year
  Sex: Male

DRUGS (8)
  1. REBETOL [Suspect]
     Indication: HEPATITIS C
     Dosage: 400 mg, bid
     Route: 048
     Dates: start: 20110122, end: 20110805
  2. FERON [Suspect]
     Indication: HEPATITIS C
     Dosage: 6 million- billion unit, qd
     Route: 041
     Dates: start: 20110122, end: 20110204
  3. FERON [Suspect]
     Dosage: 6 million- billion unit, tiw
     Route: 041
     Dates: start: 20110207, end: 20110805
  4. PEGASYS [Suspect]
     Indication: HEPATITIS C
     Dosage: 90 Microgram, qw
     Route: 058
     Dates: start: 20120131, end: 20120228
  5. COPEGUS [Suspect]
     Indication: HEPATITIS C
     Dosage: 800 mg, qd
     Route: 048
     Dates: start: 20120131, end: 20120206
  6. COPEGUS [Suspect]
     Dosage: 400 mg, qd
     Route: 048
     Dates: start: 20120207, end: 20120305
  7. TAKEPRON [Concomitant]
     Indication: GASTRIC ULCER
     Dosage: 15 mg, qd
     Route: 048
  8. DAI-KENCHU-TO [Concomitant]
     Indication: CONSTIPATION
     Dosage: 7.5 g, qd
     Route: 048

REACTIONS (7)
  - White blood cell count decreased [Recovered/Resolved]
  - Neutrophil count decreased [Recovered/Resolved]
  - Pyrexia [Recovered/Resolved]
  - Proteinuria [Recovered/Resolved]
  - Haemoglobin decreased [Recovered/Resolved]
  - White blood cell count decreased [Recovered/Resolved]
  - Neutrophil count decreased [Recovered/Resolved]
